FAERS Safety Report 7936424-5 (Version None)
Quarter: 2011Q4

REPORT INFORMATION
  Report Type: 
  Country: None (occurrence: None)
  Receive Date: 20111123
  Receipt Date: 20111116
  Transmission Date: 20120403
  Serious: Yes (Other)
  Sender: FDA-Public Use
  Company Number: US-AMGEN-USASP2011060612

PATIENT
  Age: 53 Year
  Sex: Female

DRUGS (1)
  1. ENBREL [Suspect]
     Indication: PSORIATIC ARTHROPATHY
     Dosage: 25 MG, 2 TIMES/WK
     Dates: start: 19980101

REACTIONS (6)
  - INTESTINAL PROLAPSE [None]
  - VOLVULUS [None]
  - GALLBLADDER OPERATION [None]
  - BLADDER DISORDER [None]
  - ABASIA [None]
  - URINARY TRACT INFECTION [None]
